FAERS Safety Report 14845353 (Version 2)
Quarter: 2018Q3

REPORT INFORMATION
  Report Type: Spontaneous
  Country: US (occurrence: US)
  Receive Date: 20180504
  Receipt Date: 20180706
  Transmission Date: 20181010
  Serious: Yes (Other)
  Sender: FDA-Public Use
  Company Number: US-CIPLA (EU) LIMITED-2018US17083

PATIENT

DRUGS (1)
  1. BUPROPION. [Suspect]
     Active Substance: BUPROPION
     Indication: PRODUCT USED FOR UNKNOWN INDICATION
     Dosage: UNK
     Route: 065

REACTIONS (8)
  - Seizure [Unknown]
  - Coma [Unknown]
  - Toxicity to various agents [Unknown]
  - Ventricular arrhythmia [Unknown]
  - Pneumonia aspiration [Unknown]
  - Acute lung injury [Unknown]
  - Acute kidney injury [Unknown]
  - Depressed level of consciousness [Unknown]
